FAERS Safety Report 7830251-5 (Version None)
Quarter: 2011Q4

REPORT INFORMATION
  Report Type: 
  Country: None (occurrence: None)
  Receive Date: 20111021
  Receipt Date: 20111014
  Transmission Date: 20120403
  Serious: Yes (Hospitalization, Other)
  Sender: FDA-Public Use
  Company Number: JP-B.I. PHARMACEUTICALS,INC./RIDGEFIELD-2011-BP-23194NB

PATIENT
  Sex: Male
  Weight: 64 kg

DRUGS (6)
  1. ASPIRIN [Suspect]
     Indication: CEREBELLAR INFARCTION
     Dosage: 100 MG
     Route: 048
     Dates: start: 20100406, end: 20110914
  2. HARNAL D [Concomitant]
     Indication: BENIGN PROSTATIC HYPERPLASIA
     Dosage: 0.2 MG
     Route: 048
  3. TAKEPRON [Concomitant]
     Indication: GASTRITIS PROPHYLAXIS
     Dosage: 15 MG
     Route: 048
     Dates: start: 20100406
  4. MICAMLO COMBINATION TABLETS AP [Concomitant]
     Indication: HYPERTENSION
     Route: 048
     Dates: start: 20110817
  5. PRADAXA [Suspect]
     Indication: ATRIAL FIBRILLATION
     Dosage: 220 MG
     Route: 048
     Dates: start: 20110720, end: 20110914
  6. EVIPROSTAT [Concomitant]
     Indication: BENIGN PROSTATIC HYPERPLASIA
     Route: 048

REACTIONS (4)
  - INTESTINAL HAEMORRHAGE [None]
  - OCCULT BLOOD [None]
  - ANAEMIA [None]
  - GASTRIC HAEMORRHAGE [None]
